FAERS Safety Report 18053509 (Version 2)
Quarter: 2020Q3

REPORT INFORMATION
  Report Type: Spontaneous
  Country: US (occurrence: US)
  Receive Date: 20200722
  Receipt Date: 20200723
  Transmission Date: 20201103
  Serious: Yes (Other)
  Sender: FDA-Public Use
  Company Number: US-BAUSCH-BL-2020-020678

PATIENT
  Age: 65 Year
  Sex: Female

DRUGS (2)
  1. UCERIS [Suspect]
     Active Substance: BUDESONIDE
     Indication: OFF LABEL USE
     Dosage: 2 APPLICATIONS TWICE A DAY
     Route: 054
     Dates: start: 202006
  2. UCERIS [Suspect]
     Active Substance: BUDESONIDE
     Indication: PROCTITIS
     Dosage: 2 APPLICATIONS TWICE A DAY
     Route: 054
     Dates: start: 202001, end: 202002

REACTIONS (8)
  - Off label use [Unknown]
  - Product dose omission issue [Unknown]
  - Diarrhoea [Recovered/Resolved]
  - Product container issue [Unknown]
  - Haematochezia [Recovered/Resolved]
  - Proctitis [Unknown]
  - Symptom recurrence [Unknown]
  - Drug effective for unapproved indication [Unknown]

NARRATIVE: CASE EVENT DATE: 2020
